FAERS Safety Report 5192378-9 (Version None)
Quarter: 2006Q4

REPORT INFORMATION
  Report Type: 
  Country: None (occurrence: None)
  Receive Date: 20061227
  Receipt Date: 20061215
  Transmission Date: 20070319
  Serious: Yes (Disabling, Other)
  Sender: FDA-Public Use
  Company Number: GB-PFIZER INC-2006154548

PATIENT
  Age: 74 Year
  Sex: Female
  Weight: 48 kg

DRUGS (2)
  1. PHENYTOIN [Suspect]
     Indication: EPILEPSY
     Route: 048
  2. ETANERCEPT [Interacting]

REACTIONS (4)
  - BLOOD ALKALINE PHOSPHATASE INCREASED [None]
  - DRUG INTERACTION [None]
  - DRUG LEVEL INCREASED [None]
  - WEIGHT DECREASED [None]
